FAERS Safety Report 8002036-0 (Version None)
Quarter: 2011Q4

REPORT INFORMATION
  Report Type: 
  Country: None (occurrence: None)
  Receive Date: 20111220
  Receipt Date: 20111207
  Transmission Date: 20120403
  Serious: Yes (Hospitalization)
  Sender: FDA-Public Use
  Company Number: UTC-013166

PATIENT
  Age: 89 Year
  Sex: Female
  Weight: 45.5 kg

DRUGS (4)
  1. ASPIRIN [Concomitant]
  2. TYVASO [Suspect]
     Indication: PULMONARY HYPERTENSION
     Dosage: 120 MCG 930 MCG, 4 IN 1 D), INHALATION
     Route: 055
     Dates: start: 20101020
  3. DIURETICS (DIURETICS) [Concomitant]
  4. ADCIRCA [Concomitant]

REACTIONS (1)
  - SUBARACHNOID HAEMORRHAGE [None]
